FAERS Safety Report 8921041 (Version 1)
Quarter: 2012Q4

REPORT INFORMATION
  Report Type: 
  Country: US (occurrence: US)
  Receive Date: 20121122
  Receipt Date: 20121122
  Transmission Date: 20130627
  Serious: Yes (Other)
  Sender: FDA-Public Use
  Company Number: US-ABBOTT-12P-163-1008337-00

PATIENT
  Sex: Male

DRUGS (8)
  1. CREON [Suspect]
     Indication: DYSPEPSIA
  2. HYDROCODONE [Suspect]
     Indication: PRODUCT USED FOR UNKNOWN INDICATION
  3. GEMFIBROZIL [Suspect]
     Indication: PRODUCT USED FOR UNKNOWN INDICATION
  4. ATENOLOL [Suspect]
     Indication: PRODUCT USED FOR UNKNOWN INDICATION
  5. DURAGESIC [Suspect]
     Indication: PRODUCT USED FOR UNKNOWN INDICATION
  6. ASPIRIN [Suspect]
     Indication: PRODUCT USED FOR UNKNOWN INDICATION
  7. MORPHINE SULFATE [Suspect]
     Indication: PRODUCT USED FOR UNKNOWN INDICATION
  8. DEXAMETHASONE [Suspect]
     Indication: PRODUCT USED FOR UNKNOWN INDICATION

REACTIONS (1)
  - Malignant melanoma [Unknown]
